FAERS Safety Report 9019810 (Version 2)
Quarter: 2013Q1

REPORT INFORMATION
  Report Type: Spontaneous
  Country: DE (occurrence: DE)
  Receive Date: 20130118
  Receipt Date: 20130208
  Transmission Date: 20140127
  Serious: Yes (Other)
  Sender: FDA-Public Use
  Company Number: DE-SANOFI-AVENTIS-2013SA003609

PATIENT
  Age: 71 Year
  Sex: Female
  Weight: 95 kg

DRUGS (3)
  1. MULTAQ [Suspect]
     Indication: ATRIAL FIBRILLATION
     Route: 048
     Dates: start: 20101013, end: 20111007
  2. ATACAND PLUS /GFR/ [Concomitant]
     Indication: HYPERTENSION
     Route: 048
  3. MARCUMAR [Concomitant]
     Indication: ATRIAL FIBRILLATION
     Route: 048

REACTIONS (2)
  - Atrial fibrillation [Recovered/Resolved]
  - Drug intolerance [Recovered/Resolved]
